FAERS Safety Report 4328812-3 (Version None)
Quarter: 2004Q1

REPORT INFORMATION
  Report Type: 
  Country: None (occurrence: None)
  Receive Date: 20040329
  Receipt Date: 20040112
  Transmission Date: 20041129
  Serious: No
  Sender: FDA-Public Use
  Company Number: 04P-163-0247095-00

PATIENT
  Age: 60 Year
  Sex: Female

DRUGS (16)
  1. HUMIRA [Suspect]
     Indication: RHEUMATOID ARTHRITIS
     Dosage: 40 MG, 1 IN 2 WK, SUBCUTANEOUS
     Route: 058
     Dates: start: 20031223
  2. PREDNISONE [Concomitant]
  3. MODAFINIL [Concomitant]
  4. LOTREL [Concomitant]
  5. CONJUGATED ESTROGEN [Concomitant]
  6. RALOXIFENE HCL [Concomitant]
  7. OMEPRAZOLE [Concomitant]
  8. TIZANIDINE HYDROCHLORIDE [Concomitant]
  9. OXYCOCET [Concomitant]
  10. OXYCODONE HCL [Concomitant]
  11. TRAZODONE HCL [Concomitant]
  12. MULIVITAMINS [Concomitant]
  13. CALCIUM D [Concomitant]
  14. TOCOPHEROL CONCENTRATE CAP [Concomitant]
  15. ASPIRIN [Concomitant]
  16. CETIRIZINE HCL [Concomitant]

REACTIONS (1)
  - INJECTION SITE BURNING [None]
